FAERS Safety Report 12720646 (Version 1)
Quarter: 2016Q3

REPORT INFORMATION
  Report Type: Spontaneous
  Country: SI (occurrence: SI)
  Receive Date: 20160907
  Receipt Date: 20160907
  Transmission Date: 20161109
  Serious: Yes (Hospitalization)
  Sender: FDA-Public Use
  Company Number: SI-PFIZER INC-2016415406

PATIENT
  Age: 87 Year
  Sex: Female

DRUGS (6)
  1. CORDARONE [Suspect]
     Active Substance: AMIODARONE HYDROCHLORIDE
     Indication: CARDIAC FAILURE
     Dosage: 200 MG, DAILY
     Route: 048
  2. LACIPIL [Concomitant]
     Active Substance: LACIDIPINE
     Dosage: UNK
  3. LEXAURIN [Concomitant]
     Active Substance: BROMAZEPAM
     Dosage: UNK
  4. DETRALEX [Concomitant]
     Active Substance: DIOSMIN\HESPERIDIN
     Dosage: UNK
  5. KAMIREN [Concomitant]
     Dosage: UNK
  6. TRITACE [Concomitant]
     Active Substance: RAMIPRIL
     Dosage: UNK

REACTIONS (2)
  - Bradycardia [Recovered/Resolved]
  - Syncope [Recovered/Resolved]
